FAERS Safety Report 5391221-2 (Version None)
Quarter: 2007Q3

REPORT INFORMATION
  Report Type: 
  Country: None (occurrence: None)
  Receive Date: 20070717
  Receipt Date: 20070710
  Transmission Date: 20080115
  Serious: Yes (Other)
  Sender: FDA-Public Use
  Company Number: B0479094A

PATIENT

DRUGS (1)
  1. MELPHALAN (FORMULATION UNKNOWN) (MELPHALAN) (GENERIC) [Suspect]
     Indication: STEM CELL TRANSPLANT
     Dosage: 200 MG/M2 / SINGLE DOSE / INTRAVENOUS
     Route: 042

REACTIONS (2)
  - BACTERAEMIA [None]
  - PSEUDOMONAS INFECTION [None]
